FAERS Safety Report 23867859 (Version 2)
Quarter: 2024Q2

REPORT INFORMATION
  Report Type: Spontaneous
  Country: US (occurrence: US)
  Receive Date: 20240517
  Receipt Date: 20240606
  Transmission Date: 20240716
  Serious: Yes (Other)
  Sender: FDA-Public Use
  Company Number: US-NOVOPROD-1219267

PATIENT
  Age: 83 Year
  Sex: Female

DRUGS (2)
  1. VICTOZA [Suspect]
     Active Substance: LIRAGLUTIDE
     Indication: Diabetes mellitus
     Dosage: 1.2 MG IN THE EVENING
     Route: 058
     Dates: start: 20120101
  2. TRESIBA [Suspect]
     Active Substance: INSULIN DEGLUDEC
     Indication: Diabetes mellitus
     Dosage: 5 UNITS
     Route: 058
     Dates: start: 20120101, end: 20240401

REACTIONS (6)
  - Ulcer [Recovered/Resolved]
  - Weight decreased [Recovered/Resolved]
  - Blood glucose decreased [Recovered/Resolved]
  - Food poisoning [Unknown]
  - Oral candidiasis [Unknown]
  - Urinary tract infection [Unknown]

NARRATIVE: CASE EVENT DATE: 20230701
